FAERS Safety Report 8869926 (Version 1)
Quarter: 2012Q4

REPORT INFORMATION
  Report Type: 
  Country: US (occurrence: US)
  Receive Date: 20121028
  Receipt Date: 20121028
  Transmission Date: 20130627
  Serious: No
  Sender: FDA-Public Use
  Company Number: US-009507513-1210USA010512

PATIENT
  Sex: Female

DRUGS (1)
  1. DULERA [Suspect]
     Indication: ASTHMA
     Route: 055

REACTIONS (2)
  - Oedema mouth [Recovered/Resolved]
  - Asthma [Recovered/Resolved]
